FAERS Safety Report 12271193 (Version 1)
Quarter: 2016Q2

REPORT INFORMATION
  Report Type: Spontaneous
  Country: DE (occurrence: DE)
  Receive Date: 20160415
  Receipt Date: 20160415
  Transmission Date: 20160815
  Serious: Yes (Other)
  Sender: FDA-Public Use
  Company Number: DE-SUN PHARMACEUTICAL INDUSTRIES LTD-2016RR-114803

PATIENT
  Sex: Female
  Weight: 77 kg

DRUGS (7)
  1. BISOPROLOL [Concomitant]
     Active Substance: BISOPROLOL
     Indication: GESTATIONAL HYPERTENSION
     Dosage: 1.25 MG, QD, DURING 21-38.5 GESTATIONA WEEK
     Route: 048
  2. FEMIBION [Concomitant]
     Active Substance: VITAMINS
     Indication: PROPHYLAXIS OF NEURAL TUBE DEFECT
     Dosage: 10-38.5 GESTATIONAL WEEK
     Route: 048
  3. L-THYROX 100 [Concomitant]
     Indication: HYPOTHYROIDISM
     Dosage: 100 ?G, QD, DURING GESTATIONA WEEKS 0-38.5
     Route: 048
     Dates: start: 20141127, end: 20150825
  4. AKINETON [Concomitant]
     Active Substance: BIPERIDEN HYDROCHLORIDE
     Indication: EXTRAPYRAMIDAL DISORDER
     Dosage: DOSAGE UNKNOWN, DURING 0-8 GESTATIONAL WEEK
     Route: 048
  5. OLANZAPINE. [Suspect]
     Active Substance: OLANZAPINE
     Indication: BIPOLAR DISORDER
     Dosage: IN THE BEGINNING 10MG/DAY, AFTER GW 32+6 15MG AND 10MG ALTERNATING
     Route: 048
     Dates: start: 20141127, end: 20150825
  6. LITHIUM ^APOGEPHA^ [Concomitant]
     Indication: BIPOLAR DISORDER
     Dosage: DOSAGE UNKNOWN, DURING 0-8 GESTATIONAL WEEK
     Route: 048
  7. PANTOPRAZOLE [Concomitant]
     Active Substance: PANTOPRAZOLE SODIUM
     Indication: PROPHYLAXIS AGAINST GASTROINTESTINAL ULCER
     Dosage: 40 MG, QD, DURING GESTATION WEEKS 0-38.5
     Route: 048
     Dates: start: 20141127, end: 20150825

REACTIONS (1)
  - Gestational diabetes [Recovered/Resolved]
